FAERS Safety Report 10860847 (Version 3)
Quarter: 2015Q1

REPORT INFORMATION
  Report Type: Spontaneous
  Country: US (occurrence: US)
  Receive Date: 20150224
  Receipt Date: 20150330
  Transmission Date: 20150721
  Serious: Yes (Other)
  Sender: FDA-Public Use
  Company Number: US-THROMBOGENICS NV-SPO-2015-1736

PATIENT
  Age: 66 Year
  Sex: Male

DRUGS (2)
  1. JETREA [Suspect]
     Active Substance: OCRIPLASMIN
     Indication: VITREOUS ADHESIONS
     Dosage: 0.125 MG, ONE TIME DOSE
     Route: 031
     Dates: start: 20150212, end: 20150212
  2. JETREA [Suspect]
     Active Substance: OCRIPLASMIN
     Indication: MACULAR HOLE

REACTIONS (12)
  - Pupillary reflex impaired [Not Recovered/Not Resolved]
  - Night blindness [Unknown]
  - Retinal injury [Not Recovered/Not Resolved]
  - Vision blurred [Unknown]
  - Photophobia [Unknown]
  - Visual field defect [Unknown]
  - Blindness transient [Recovered/Resolved]
  - Metamorphopsia [Not Recovered/Not Resolved]
  - Visual impairment [Not Recovered/Not Resolved]
  - Photopsia [Unknown]
  - Vitreous floaters [Unknown]
  - Miosis [Not Recovered/Not Resolved]

NARRATIVE: CASE EVENT DATE: 201502
